FAERS Safety Report 9022684 (Version 1)
Quarter: 2013Q1

REPORT INFORMATION
  Report Type: Spontaneous
  Country: US (occurrence: US)
  Receive Date: 20130120
  Receipt Date: 20130120
  Transmission Date: 20140127
  Serious: No
  Sender: FDA-Public Use
  Company Number: US-ALLERGAN-1217800US

PATIENT
  Sex: Male

DRUGS (2)
  1. BOTOX? [Suspect]
     Indication: MIGRAINE
     Dosage: UNK, SINGLE
     Route: 030
     Dates: start: 20121212, end: 20121212
  2. BOTOX? [Suspect]
     Indication: NECK PAIN

REACTIONS (2)
  - Dyspnoea [Recovered/Resolved]
  - Muscular weakness [Unknown]
